FAERS Safety Report 15050199 (Version 1)
Quarter: 2018Q2

REPORT INFORMATION
  Report Type: Spontaneous
  Country: US (occurrence: US)
  Receive Date: 20180622
  Receipt Date: 20180622
  Transmission Date: 20180711
  Serious: Yes (Other)
  Sender: FDA-Public Use
  Company Number: US-BEH-2018091969

PATIENT
  Age: 38 Year
  Sex: Male
  Weight: 76.19 kg

DRUGS (32)
  1. ZEMAIRA [Suspect]
     Active Substance: .ALPHA.1-PROTEINASE INHIBITOR HUMAN
     Indication: ALPHA-1 ANTI-TRYPSIN DEFICIENCY
     Dosage: UNK
     Route: 042
  2. JANUMET [Concomitant]
     Active Substance: METFORMIN HYDROCHLORIDE\SITAGLIPTIN PHOSPHATE
  3. SYMBICORT [Concomitant]
     Active Substance: BUDESONIDE\FORMOTEROL FUMARATE DIHYDRATE
  4. PRAVASTATIN. [Concomitant]
     Active Substance: PRAVASTATIN
  5. CITALOPRAM [Concomitant]
     Active Substance: CITALOPRAM HYDROBROMIDE
  6. ALBUTEROL                          /00139501/ [Concomitant]
     Active Substance: ALBUTEROL
  7. AMBIEN [Concomitant]
     Active Substance: ZOLPIDEM TARTRATE
  8. MONTELUKAST [Concomitant]
     Active Substance: MONTELUKAST SODIUM
  9. ZEMAIRA [Suspect]
     Active Substance: .ALPHA.1-PROTEINASE INHIBITOR HUMAN
     Dosage: 60 MG/KG, QW
     Route: 042
     Dates: start: 20140801
  10. CAMBIA [Concomitant]
     Active Substance: DICLOFENAC POTASSIUM
  11. HYDROCODONE W/HOMATROPINE [Concomitant]
     Active Substance: HOMATROPINE METHYLBROMIDE\HYDROCODONE BITARTRATE
  12. LMX                                /00033401/ [Concomitant]
  13. AMITRIPTYLINE [Concomitant]
     Active Substance: AMITRIPTYLINE
  14. GABAPENTIN. [Concomitant]
     Active Substance: GABAPENTIN
  15. VALCYCLOR [Concomitant]
  16. METHOCARBAMOL. [Concomitant]
     Active Substance: METHOCARBAMOL
  17. BREO ELLIPTA [Concomitant]
     Active Substance: FLUTICASONE FUROATE\VILANTEROL TRIFENATATE
  18. FLUTICASONE. [Concomitant]
     Active Substance: FLUTICASONE
  19. HYDROCODONE BITARTRATE AND ACETAMINOPHEN [Concomitant]
     Active Substance: ACETAMINOPHEN\HYDROCODONE BITARTRATE
  20. LISINOPRIL. [Concomitant]
     Active Substance: LISINOPRIL
  21. SODIUM CHLORIDE. [Concomitant]
     Active Substance: SODIUM CHLORIDE
  22. TESTOSTERONE. [Concomitant]
     Active Substance: TESTOSTERONE
  23. XANAX [Concomitant]
     Active Substance: ALPRAZOLAM
  24. TOPROL XL [Concomitant]
     Active Substance: METOPROLOL SUCCINATE
  25. DIPHENHYDRAMINE. [Concomitant]
     Active Substance: DIPHENHYDRAMINE
  26. EPINEPHRINE. [Concomitant]
     Active Substance: EPINEPHRINE
  27. CYCLOBENZAPRINE. [Concomitant]
     Active Substance: CYCLOBENZAPRINE
  28. OXYGEN. [Concomitant]
     Active Substance: OXYGEN
  29. INVOKANA [Concomitant]
     Active Substance: CANAGLIFLOZIN
  30. NITROGLYCERIN. [Concomitant]
     Active Substance: NITROGLYCERIN
  31. REPAGLINIDE. [Concomitant]
     Active Substance: REPAGLINIDE
  32. PREDNISONE. [Concomitant]
     Active Substance: PREDNISONE

REACTIONS (3)
  - Peripheral swelling [Unknown]
  - Nausea [Unknown]
  - Diarrhoea [Unknown]

NARRATIVE: CASE EVENT DATE: 2018
